APPROVED DRUG PRODUCT: NISOLDIPINE
Active Ingredient: NISOLDIPINE
Strength: 20MG
Dosage Form/Route: TABLET, EXTENDED RELEASE;ORAL
Application: A079051 | Product #001
Applicant: MYLAN PHARMACEUTICALS INC
Approved: Jul 25, 2008 | RLD: No | RS: Yes | Type: RX